FAERS Safety Report 5097775-8 (Version None)
Quarter: 2006Q3

REPORT INFORMATION
  Report Type: 
  Country: None (occurrence: None)
  Receive Date: 20060905
  Receipt Date: 20060822
  Transmission Date: 20061208
  Serious: Yes (Death, Other)
  Sender: FDA-Public Use
  Company Number: GBR-2006-0002448

PATIENT

DRUGS (5)
  1. OXYCONTIN [Suspect]
     Indication: DRUG USE FOR UNKNOWN INDICATION
  2. OXYCODONE HCL [Suspect]
     Indication: DRUG USE FOR UNKNOWN INDICATION
     Dosage: IV DRIP
     Route: 041
  3. MIDAZOLAM HCL [Concomitant]
  4. CYCLIZINE HYDROCHLORIDE (CYCLIZINE HYDROCHLORIDE) [Concomitant]
  5. DIAMORPHINE (DIAMORPHINE) [Concomitant]

REACTIONS (3)
  - ABNORMAL BEHAVIOUR [None]
  - AGITATION [None]
  - PAIN [None]
